FAERS Safety Report 8976750 (Version 2)
Quarter: 2013Q1

REPORT INFORMATION
  Report Type: Spontaneous
  Country: US (occurrence: US)
  Receive Date: 20121220
  Receipt Date: 20130104
  Transmission Date: 20140127
  Serious: Yes (Hospitalization, Other)
  Sender: FDA-Public Use
  Company Number: US-TEVA-376273USA

PATIENT
  Age: 55 Year
  Sex: Female

DRUGS (2)
  1. COPAXONE [Suspect]
     Indication: MULTIPLE SCLEROSIS
     Route: 058
     Dates: start: 20030512
  2. AMPYRA [Suspect]
     Dates: end: 20120930

REACTIONS (6)
  - Fall [Recovered/Resolved]
  - Lower limb fracture [Recovered/Resolved]
  - Loss of consciousness [Recovered/Resolved]
  - Urticaria [Not Recovered/Not Resolved]
  - Dizziness [Recovered/Resolved]
  - Tremor [Recovered/Resolved]
